FAERS Safety Report 9563886 (Version 5)
Quarter: 2014Q1

REPORT INFORMATION
  Report Type: Report from Study
  Country: BR (occurrence: BR)
  Receive Date: 20130927
  Receipt Date: 20140212
  Transmission Date: 20141002
  Serious: Yes (Hospitalization)
  Sender: FDA-Public Use
  Company Number: BR-ROCHE-1243535

PATIENT
  Age: 79 Year
  Sex: Female
  Weight: 60 kg

DRUGS (11)
  1. ACTEMRA [Suspect]
     Indication: RHEUMATOID ARTHRITIS
     Dosage: LAST INFUSION ON 10/JAN/2014.
     Route: 042
     Dates: start: 20130401
  2. FLUOXETINE [Concomitant]
     Route: 065
  3. DEFLAZACORT [Concomitant]
     Route: 065
  4. FOLIC ACID [Concomitant]
     Route: 065
  5. B COMPLEX VITAMIN [Concomitant]
     Route: 065
  6. ARNICA [Concomitant]
     Route: 065
  7. CYCLOBENZAPRINE [Concomitant]
  8. CAFFEINE [Concomitant]
     Route: 065
  9. FAMOTIDINE [Concomitant]
  10. OMEGA 3 [Concomitant]
  11. PARACETAMOL [Concomitant]

REACTIONS (8)
  - Cataract [Unknown]
  - Therapeutic response decreased [Unknown]
  - Joint swelling [Not Recovered/Not Resolved]
  - Arthralgia [Not Recovered/Not Resolved]
  - Neuritis [Unknown]
  - Arthralgia [Recovering/Resolving]
  - Gait disturbance [Not Recovered/Not Resolved]
  - Drug dose omission [Unknown]
